FAERS Safety Report 9922741 (Version 2)
Quarter: 2014Q1

REPORT INFORMATION
  Report Type: Spontaneous
  Country: US (occurrence: US)
  Receive Date: 20140225
  Receipt Date: 20140307
  Transmission Date: 20141002
  Serious: Yes (Hospitalization)
  Sender: FDA-Public Use
  Company Number: US-BAYER-2014-028446

PATIENT
  Age: 89 Year
  Sex: Male
  Weight: 86 kg

DRUGS (3)
  1. BAYER ASPIRIN REGIMEN ADULT LOW STRENGTH [Suspect]
     Indication: ISCHAEMIC HEART DISEASE PROPHYLAXIS
     Dosage: 2 DF, QD
     Route: 048
     Dates: start: 2004
  2. ZOCOR [Concomitant]
  3. TAMSULOSIN [Concomitant]

REACTIONS (2)
  - Blood urine present [Recovered/Resolved]
  - Dehydration [Recovered/Resolved]
